FAERS Safety Report 24610314 (Version 1)
Quarter: 2024Q4

REPORT INFORMATION
  Report Type: Spontaneous
  Country: CA (occurrence: CA)
  Receive Date: 20241112
  Receipt Date: 20241112
  Transmission Date: 20250114
  Serious: Yes (Other)
  Sender: AMERICAN REGENT
  Company Number: CA-AMERICAN REGENT INC-2024003816

PATIENT
  Age: 35 Year
  Sex: Female

DRUGS (3)
  1. VENOFER [Suspect]
     Active Substance: IRON SUCROSE
     Indication: Iron deficiency anaemia
     Dosage: 300MG(100MG/5ML)/250ML NS
  2. VENOFER [Suspect]
     Active Substance: IRON SUCROSE
     Indication: Anaemia of pregnancy
     Dosage: 300MG(100MG/5ML)/250ML NS
  3. VENOFER [Suspect]
     Active Substance: IRON SUCROSE
     Dosage: 300MG(100MG/5ML)/250ML NS
     Dates: start: 20240610, end: 20240610

REACTIONS (4)
  - Maternal exposure during pregnancy [Unknown]
  - Infusion site urticaria [Recovered/Resolved]
  - Incorrect product administration duration [Unknown]
  - Off label use [Unknown]

NARRATIVE: CASE EVENT DATE: 20240610
